FAERS Safety Report 15004383 (Version 10)
Quarter: 2020Q1

REPORT INFORMATION
  Report Type: Spontaneous
  Country: US (occurrence: US)
  Receive Date: 20180613
  Receipt Date: 20200331
  Transmission Date: 20200409
  Serious: No
  Sender: FDA-Public Use
  Company Number: US-PFIZER INC-2018240044

PATIENT
  Age: 5 Year
  Sex: Male
  Weight: 15 kg

DRUGS (5)
  1. GENOTROPIN [Suspect]
     Active Substance: SOMATROPIN
     Dosage: 1 MG, UNK [MONDAY THROUGH SATURDAY; IF THERE IS A MISSED DOSE HE MAKES IT UP ON SUN]
     Route: 058
     Dates: start: 2018
  2. GENOTROPIN [Suspect]
     Active Substance: SOMATROPIN
     Dosage: UNK
  3. GENOTROPIN [Suspect]
     Active Substance: SOMATROPIN
     Indication: BODY HEIGHT BELOW NORMAL
     Dosage: 0.8 MG, DAILY
  4. GENOTROPIN [Suspect]
     Active Substance: SOMATROPIN
     Indication: LOW BIRTH WEIGHT BABY
     Dosage: 0.7 MG, DAILY
     Route: 058
     Dates: start: 20170620, end: 20181122
  5. GENOTROPIN [Suspect]
     Active Substance: SOMATROPIN
     Indication: BLOOD GROWTH HORMONE ABNORMAL
     Dosage: 1 MG, UNK
     Dates: start: 2017

REACTIONS (6)
  - Incorrect dose administered [Unknown]
  - Device leakage [Unknown]
  - Limb mass [Unknown]
  - Device breakage [Unknown]
  - Drug dose omission by device [Unknown]
  - Device defective [Unknown]

NARRATIVE: CASE EVENT DATE: 20180716
